FAERS Safety Report 7781626-4 (Version None)
Quarter: 2011Q3

REPORT INFORMATION
  Report Type: 
  Country: None (occurrence: None)
  Receive Date: 20110927
  Receipt Date: 20110920
  Transmission Date: 20111222
  Serious: Yes (Other)
  Sender: FDA-Public Use
  Company Number: CHPA2011JP12888

PATIENT
  Sex: Female

DRUGS (1)
  1. PURSENNID [Suspect]
     Indication: CONSTIPATION
     Dosage: UNK, UNK
     Route: 048
     Dates: start: 20110604

REACTIONS (3)
  - HAEMORRHAGE [None]
  - DRUG INEFFECTIVE [None]
  - HAEMORRHOIDS [None]
